FAERS Safety Report 19920902 (Version 1)
Quarter: 2021Q4

REPORT INFORMATION
  Report Type: Spontaneous
  Country: FR (occurrence: FR)
  Receive Date: 20211005
  Receipt Date: 20211005
  Transmission Date: 20220303
  Serious: Yes (Other)
  Sender: FDA-Public Use
  Company Number: FR-ABBVIE-21K-056-4102502-00

PATIENT
  Age: 39 Year
  Sex: Male
  Weight: 90 kg

DRUGS (1)
  1. DEPAKOTE [Suspect]
     Active Substance: DIVALPROEX SODIUM
     Indication: Bipolar disorder
     Route: 048
     Dates: start: 20180926, end: 20180929

REACTIONS (8)
  - Depressed level of consciousness [Recovered/Resolved]
  - Hyperhidrosis [Recovered/Resolved]
  - Vertigo [Recovered/Resolved]
  - Malaise [Recovered/Resolved]
  - Nausea [Recovered/Resolved]
  - Vomiting [Recovered/Resolved]
  - Diarrhoea [Recovered/Resolved]
  - Somnolence [Recovered/Resolved]

NARRATIVE: CASE EVENT DATE: 20180927
